FAERS Safety Report 15516999 (Version 2)
Quarter: 2018Q4

REPORT INFORMATION
  Report Type: Spontaneous
  Country: HK (occurrence: HK)
  Receive Date: 20181017
  Receipt Date: 20181112
  Transmission Date: 20190205
  Serious: Yes (Life-Threatening, Hospitalization, Other)
  Sender: FDA-Public Use
  Company Number: HK-UCBSA-2018045355

PATIENT
  Age: 31 Year
  Sex: Male

DRUGS (12)
  1. KETAMINE [Suspect]
     Active Substance: KETAMINE
     Indication: GENERALISED TONIC-CLONIC SEIZURE
     Dosage: 220 MG DAILY
     Route: 042
     Dates: start: 2012
  2. VALPROIC ACID. [Suspect]
     Active Substance: VALPROIC ACID
     Indication: GENERALISED TONIC-CLONIC SEIZURE
     Dosage: 1200 MG DAILY
     Route: 042
     Dates: start: 2012
  3. SULBACTAM [Concomitant]
     Active Substance: SULBACTAM
     Indication: SEPSIS
     Dosage: UNK
  4. ERTAPENEM. [Concomitant]
     Active Substance: ERTAPENEM SODIUM
     Indication: SEPSIS
     Dosage: UNK
  5. THIOPENTAL [Suspect]
     Active Substance: THIOPENTAL
     Indication: GENERALISED TONIC-CLONIC SEIZURE
     Dosage: 300 MG DAILY
     Route: 042
     Dates: start: 2012
  6. MIDAZOLAM [Suspect]
     Active Substance: MIDAZOLAM HYDROCHLORIDE
     Indication: GENERALISED TONIC-CLONIC SEIZURE
     Dosage: APPROX. 60 MG/H
     Route: 042
     Dates: start: 2012
  7. PROPOFOL. [Suspect]
     Active Substance: PROPOFOL
     Indication: GENERALISED TONIC-CLONIC SEIZURE
     Dosage: UP TO 110 MG/H
     Route: 042
     Dates: start: 2012
  8. PHENOBARBITONE [Suspect]
     Active Substance: PHENOBARBITAL
     Indication: GENERALISED TONIC-CLONIC SEIZURE
     Dosage: 300 MG DAILY
     Route: 042
     Dates: start: 2012
  9. TICARCILLIN [Concomitant]
     Active Substance: TICARCILLIN
     Indication: SEPSIS
     Dosage: UNK
  10. LEVETIRACETAM. [Suspect]
     Active Substance: LEVETIRACETAM
     Indication: GENERALISED TONIC-CLONIC SEIZURE
     Dosage: 3000 MG DAILY
     Route: 042
     Dates: start: 2012
  11. PHENYTOIN. [Suspect]
     Active Substance: PHENYTOIN
     Indication: GENERALISED TONIC-CLONIC SEIZURE
     Dosage: 300 MG DAILY
     Route: 042
     Dates: start: 2012
  12. MEROPENEM. [Concomitant]
     Active Substance: MEROPENEM
     Indication: SEPSIS
     Dosage: UNK

REACTIONS (6)
  - Hyperammonaemia [Unknown]
  - Hepatotoxicity [Unknown]
  - Rhabdomyolysis [Unknown]
  - Multiple-drug resistance [Unknown]
  - Status epilepticus [Recovered/Resolved]
  - Renal failure [Unknown]

NARRATIVE: CASE EVENT DATE: 2012
